FAERS Safety Report 10900225 (Version 1)
Quarter: 2015Q1

REPORT INFORMATION
  Report Type: Spontaneous
  Country: FR (occurrence: FR)
  Receive Date: 20150310
  Receipt Date: 20150310
  Transmission Date: 20150721
  Serious: Yes (Hospitalization)
  Sender: FDA-Public Use
  Company Number: FR-AUROBINDO-AUR-APL-2015-01852

PATIENT
  Age: 31 Year
  Sex: Male

DRUGS (4)
  1. MYCOPHENOLATE MOFETIL. [Concomitant]
     Active Substance: MYCOPHENOLATE MOFETIL
     Indication: IMMUNOSUPPRESSION
     Dosage: UNK
     Route: 065
  2. PREDNISONE. [Concomitant]
     Active Substance: PREDNISONE
     Indication: IMMUNOSUPPRESSION
     Dosage: UNK
     Route: 065
  3. FLUCONAZOLE 100MG [Suspect]
     Active Substance: FLUCONAZOLE
     Indication: CANDIDA INFECTION
     Dosage: 100 MG, TWO TIMES A DAY
     Route: 048
  4. TACROLIMUS. [Interacting]
     Active Substance: TACROLIMUS
     Indication: IMMUNOSUPPRESSION
     Dosage: UNK
     Route: 065

REACTIONS (12)
  - Hypotension [Unknown]
  - Tachycardia [Unknown]
  - Treatment failure [Unknown]
  - Septic shock [Unknown]
  - Arterial rupture [Unknown]
  - Shock haemorrhagic [Unknown]
  - Loss of consciousness [Unknown]
  - Peritoneal haemorrhage [Unknown]
  - Abdominal pain lower [Unknown]
  - Abdominal discomfort [Unknown]
  - Drug interaction [Unknown]
  - Vascular pseudoaneurysm ruptured [None]
